FAERS Safety Report 9639899 (Version 1)
Quarter: 2013Q4

REPORT INFORMATION
  Report Type: Spontaneous
  Country: GB (occurrence: GB)
  Receive Date: 20131023
  Receipt Date: 20131023
  Transmission Date: 20140711
  Serious: Yes (Hospitalization, Other)
  Sender: FDA-Public Use
  Company Number: GB-NAPPMUNDI-GBR-2013-0016042

PATIENT
  Sex: Female

DRUGS (2)
  1. OXYCONTIN TABLETS [Suspect]
     Indication: PAIN
     Dosage: OVER 1000MG
     Route: 048
  2. OXYNORM [Suspect]
     Indication: PAIN

REACTIONS (3)
  - Overdose [Unknown]
  - Drug dependence [Unknown]
  - Substance-induced psychotic disorder [Unknown]
